FAERS Safety Report 6600612-0 (Version None)
Quarter: 2010Q1

REPORT INFORMATION
  Report Type: 
  Country: None (occurrence: None)
  Receive Date: 20100223
  Receipt Date: 20100223
  Transmission Date: 20100710
  Serious: Yes (Hospitalization)
  Sender: FDA-Public Use
  Company Number: None

PATIENT
  Age: 89 Year
  Sex: Male

DRUGS (1)
  1. LISINOPRIL [Suspect]
     Indication: HYPERTENSION
     Dosage: 20 MG EVERYDAY PO
     Route: 048
     Dates: start: 20100114, end: 20100115

REACTIONS (4)
  - HYPOTENSION [None]
  - ORTHOSTATIC HYPOTENSION [None]
  - RECTAL HAEMORRHAGE [None]
  - SYNCOPE [None]
